FAERS Safety Report 9147705 (Version 3)
Quarter: 2013Q2

REPORT INFORMATION
  Report Type: Spontaneous
  Country: DE (occurrence: DE)
  Receive Date: 20130307
  Receipt Date: 20130524
  Transmission Date: 20140414
  Serious: Yes (Hospitalization, Other)
  Sender: FDA-Public Use
  Company Number: DE-B.I. PHARMACEUTICALS,INC./RIDGEFIELD-2013-BI-05596BY

PATIENT
  Age: 0 Year
  Sex: Male
  Weight: 2.37 kg

DRUGS (1)
  1. TELMISARTAN + HYDROCHLOROTHIAZIDE [Suspect]
     Route: 064

REACTIONS (15)
  - Hypoglycaemia neonatal [Not Recovered/Not Resolved]
  - Patent ductus arteriosus [Not Recovered/Not Resolved]
  - Kidney enlargement [Not Recovered/Not Resolved]
  - Neonatal hypotension [Not Recovered/Not Resolved]
  - Renal impairment neonatal [Not Recovered/Not Resolved]
  - Bone lesion [Not Recovered/Not Resolved]
  - Muscle contracture [Not Recovered/Not Resolved]
  - Premature baby [Not Recovered/Not Resolved]
  - Respiratory disorder neonatal [Not Recovered/Not Resolved]
  - Microcephaly [Not Recovered/Not Resolved]
  - Anuria [Not Recovered/Not Resolved]
  - Blood creatinine increased [Not Recovered/Not Resolved]
  - Haematoma [Not Recovered/Not Resolved]
  - Tachypnoea [Not Recovered/Not Resolved]
  - Renal failure [Not Recovered/Not Resolved]
